FAERS Safety Report 11067856 (Version 1)
Quarter: 2015Q2

REPORT INFORMATION
  Report Type: Spontaneous
  Country: US (occurrence: US)
  Receive Date: 20150427
  Receipt Date: 20150427
  Transmission Date: 20150821
  Serious: No
  Sender: FDA-Public Use
  Company Number: US-BAYER-2015-113500

PATIENT
  Age: 55 Year
  Sex: Male
  Weight: 104.31 kg

DRUGS (16)
  1. BACTROBAN [Concomitant]
     Active Substance: MUPIROCIN\MUPIROCIN CALCIUM
     Dosage: 1 APPLICATION TO AFFECTED AREA, TID
  2. LYRICA [Concomitant]
     Active Substance: PREGABALIN
     Dosage: 1 DF, TID
     Route: 048
  3. MORPHINE SULFATE. [Concomitant]
     Active Substance: MORPHINE SULFATE
     Dosage: 30 MG, PRN EVERY 4 HOURS
  4. ALPRAZOLAM. [Concomitant]
     Active Substance: ALPRAZOLAM
     Dosage: 1 DF, BID
  5. ZANTAC [Concomitant]
     Active Substance: RANITIDINE HYDROCHLORIDE
     Dosage: 1 DF, BID
     Route: 048
  6. DAPTOMYCIN. [Concomitant]
     Active Substance: DAPTOMYCIN
  7. LEVEMIR [Concomitant]
     Active Substance: INSULIN DETEMIR
     Dosage: 20 U, QPM
  8. SIMVASTATIN. [Concomitant]
     Active Substance: SIMVASTATIN
     Dosage: 1 DF, EVENING QD
  9. ALEVE [Suspect]
     Active Substance: NAPROXEN SODIUM
  10. HUMALOG [Concomitant]
     Active Substance: INSULIN LISPRO
     Dosage: 36 U, QD
  11. MERREM [Concomitant]
     Active Substance: MEROPENEM
  12. ASPIRIN. [Concomitant]
     Active Substance: ASPIRIN
     Dosage: 1 DF, QD
  13. LIDOCAINE. [Concomitant]
     Active Substance: LIDOCAINE
     Dosage: AS DIRECTED
  14. LEVEMIR [Concomitant]
     Active Substance: INSULIN DETEMIR
     Dosage: 20 U, QAM
  15. HUMALOG [Concomitant]
     Active Substance: INSULIN LISPRO
     Dosage: 12 U, QD
  16. MORPHINE SULFATE. [Concomitant]
     Active Substance: MORPHINE SULFATE
     Dosage: 1 DF, ONCE
     Route: 048

REACTIONS (2)
  - Drug hypersensitivity [Unknown]
  - Nausea [Unknown]
